FAERS Safety Report 5051983-0 (Version None)
Quarter: 2006Q3

REPORT INFORMATION
  Report Type: 
  Country: None (occurrence: None)
  Receive Date: 20060711
  Receipt Date: 20060620
  Transmission Date: 20061208
  Serious: Yes (Hospitalization, Other)
  Sender: FDA-Public Use
  Company Number: USA020312149

PATIENT
  Age: 61 Year
  Sex: Male
  Weight: 101.4 kg

DRUGS (9)
  1. HUMALOG [Suspect]
     Indication: DIABETES MELLITUS
     Dosage: SEE IMAGE
     Route: 058
     Dates: start: 19990101
  2. SYNTHROID [Concomitant]
  3. DITROPAN XL [Concomitant]
  4. CARTIA XT [Concomitant]
  5. ZOLADEX [Concomitant]
  6. LUPRON [Concomitant]
  7. GLUCOSAMINE CHONDROITIN [Concomitant]
  8. ASPIRIN [Concomitant]
  9. HERBAL PREPARATION [Concomitant]

REACTIONS (6)
  - BLOOD GLUCOSE INCREASED [None]
  - BODY HEIGHT DECREASED [None]
  - INJECTION SITE INDURATION [None]
  - PROSTATE CANCER METASTATIC [None]
  - RADIATION SKIN INJURY [None]
  - URINARY TRACT INFECTION [None]
